FAERS Safety Report 9900135 (Version 2)
Quarter: 2014Q1

REPORT INFORMATION
  Report Type: Spontaneous
  Country: US (occurrence: US)
  Receive Date: 20140214
  Receipt Date: 20140305
  Transmission Date: 20141002
  Serious: Yes (Other)
  Sender: FDA-Public Use
  Company Number: US-RB-063397-14

PATIENT
  Age: 57 Year
  Sex: Male

DRUGS (1)
  1. SUBOXONE FILM [Suspect]
     Indication: DRUG DEPENDENCE
     Dosage: SUBOXONE FILM
     Route: 060
     Dates: start: 2010

REACTIONS (3)
  - Glaucoma [Not Recovered/Not Resolved]
  - Hepatitis C [Not Recovered/Not Resolved]
  - Visual impairment [Not Recovered/Not Resolved]
